FAERS Safety Report 8581644 (Version 5)
Quarter: 2012Q4

REPORT INFORMATION
  Report Type: 
  Country: US (occurrence: US)
  Receive Date: 20120525
  Receipt Date: 20121121
  Transmission Date: 20130627
  Serious: Yes (Other)
  Sender: FDA-Public Use
  Company Number: US-MSD-0707USA02693

PATIENT

DRUGS (3)
  1. FOSAMAX [Suspect]
     Indication: BLOOD CHOLESTEROL INCREASED
     Dosage: 70 mg, QW
     Route: 048
     Dates: start: 200210, end: 200605
  2. TRICOR (FENOFIBRATE) [Concomitant]
     Indication: BLOOD CHOLESTEROL INCREASED
     Dates: start: 1980
  3. FOSAMAX PLUS D [Suspect]
     Indication: OSTEOPOROSIS
     Route: 048
     Dates: start: 20060302

REACTIONS (30)
  - Osteomyelitis [Not Recovered/Not Resolved]
  - Squamous cell carcinoma of skin [Unknown]
  - Osteonecrosis of jaw [Not Recovered/Not Resolved]
  - Gallbladder disorder [Unknown]
  - Ear pain [Unknown]
  - Exostosis [Unknown]
  - Graft dysfunction [Unknown]
  - Implant site discharge [Unknown]
  - Bone loss [Unknown]
  - None [Unknown]
  - Tooth fracture [Unknown]
  - Bone density decreased [Unknown]
  - Cholelithiasis [Unknown]
  - Angiomyolipoma [Unknown]
  - Adrenal adenoma [Unknown]
  - Diverticulum [Unknown]
  - Large intestine polyp [Unknown]
  - None [Unknown]
  - Tooth disorder [Unknown]
  - Tooth abscess [Unknown]
  - Hepatic steatosis [Unknown]
  - Carotid artery disease [Unknown]
  - Vulvovaginal dryness [Unknown]
  - Atrophy [Unknown]
  - Scar [Unknown]
  - Gingival recession [Unknown]
  - Musculoskeletal pain [Unknown]
  - Erythema [Unknown]
  - Pain in extremity [Unknown]
  - Dysgeusia [Unknown]
